FAERS Safety Report 6186325-0 (Version None)
Quarter: 2009Q2

REPORT INFORMATION
  Report Type: 
  Country: None (occurrence: None)
  Receive Date: 20090511
  Receipt Date: 20090505
  Transmission Date: 20091009
  Serious: Yes (Hospitalization)
  Sender: FDA-Public Use
  Company Number: US-AVENTIS-200913094US

PATIENT
  Sex: Female
  Weight: 73 kg

DRUGS (10)
  1. LANTUS [Suspect]
     Indication: TYPE 2 DIABETES MELLITUS
     Route: 058
  2. OPTICLIK (INSULIN INJECTION PEN) [Suspect]
     Indication: TYPE 2 DIABETES MELLITUS
  3. GLIPIZIDE [Concomitant]
  4. CLONIDINE HCL [Concomitant]
  5. CRESTOR [Concomitant]
  6. GLYSET                             /01364001/ [Concomitant]
  7. LEXAPRO [Concomitant]
  8. MICARDIS HCT [Concomitant]
     Dosage: DOSE: 80-12.5
  9. TRIAMTERENE AND HYDROCHLOROTHIAZIDE [Concomitant]
     Dosage: DOSE: 37.5-25
  10. VERELAN PM [Concomitant]

REACTIONS (3)
  - DEHYDRATION [None]
  - PNEUMONIA [None]
  - URINARY TRACT INFECTION [None]
